FAERS Safety Report 11723986 (Version 1)
Quarter: 2015Q4

REPORT INFORMATION
  Report Type: Spontaneous
  Country: US (occurrence: US)
  Receive Date: 20151111
  Receipt Date: 20151111
  Transmission Date: 20160304
  Serious: Yes (Hospitalization)
  Sender: FDA-Public Use
  Company Number: PHEH2015US022928

PATIENT
  Age: 82 Year
  Sex: Male

DRUGS (1)
  1. VOTRIENT [Suspect]
     Active Substance: PAZOPANIB HYDROCHLORIDE
     Indication: METASTASES TO KIDNEY
     Dosage: 800 MG, QD
     Route: 048
     Dates: start: 20150428

REACTIONS (2)
  - Pneumonia [Unknown]
  - Localised infection [Unknown]

NARRATIVE: CASE EVENT DATE: 201510
